FAERS Safety Report 20053844 (Version 1)
Quarter: 2021Q4

REPORT INFORMATION
  Report Type: Spontaneous
  Country: HU (occurrence: HU)
  Receive Date: 20211110
  Receipt Date: 20211110
  Transmission Date: 20220303
  Serious: Yes (Death, Other)
  Sender: FDA-Public Use
  Company Number: HU-JNJFOC-20211061701

PATIENT
  Sex: Female

DRUGS (2)
  1. TRACLEER [Suspect]
     Active Substance: BOSENTAN
     Indication: Product used for unknown indication
     Route: 065
     Dates: start: 2014
  2. EPOPROSTENOL [Concomitant]
     Active Substance: EPOPROSTENOL
     Dates: start: 2018

REACTIONS (4)
  - Cardiac failure [Fatal]
  - Systemic scleroderma [Unknown]
  - Interstitial lung disease [Unknown]
  - Ulcer [Unknown]

NARRATIVE: CASE EVENT DATE: 20170101
